FAERS Safety Report 23390914 (Version 2)
Quarter: 2024Q3

REPORT INFORMATION
  Report Type: Spontaneous
  Country: TR (occurrence: TR)
  Receive Date: 20240111
  Receipt Date: 20240829
  Transmission Date: 20241017
  Serious: Yes (Other)
  Sender: NOVARTIS
  Company Number: TR-002147023-NVSC2024TR005126

PATIENT
  Age: 24 Year
  Sex: Female

DRUGS (2)
  1. TRILEPTAL [Suspect]
     Active Substance: OXCARBAZEPINE
     Indication: Epilepsy
     Dosage: 3 DOSAGE FORM
     Route: 065
  2. TRILEPTAL [Suspect]
     Active Substance: OXCARBAZEPINE
     Dosage: UNK (2.5 TABLETS A DAY (1.5 TABLETS IN THE MORNING, 1 TABLET AT THE EVENING)
     Route: 065

REACTIONS (3)
  - Diplopia [Unknown]
  - Product availability issue [Unknown]
  - Intentional product use issue [Unknown]
